FAERS Safety Report 9322510 (Version 1)
Quarter: 2013Q2

REPORT INFORMATION
  Report Type: Report from Study
  Country: US (occurrence: US)
  Receive Date: 20130531
  Receipt Date: 20130531
  Transmission Date: 20140414
  Serious: Yes (Hospitalization)
  Sender: FDA-Public Use
  Company Number: US-PFIZER INC-2013145724

PATIENT
  Age: 64 Year
  Sex: Female

DRUGS (3)
  1. TEMSIROLIMUS [Suspect]
     Indication: HEAD AND NECK CANCER METASTATIC
     Dosage: UNK
     Dates: start: 201304
  2. CARBOPLATIN [Suspect]
     Indication: HEAD AND NECK CANCER METASTATIC
     Dosage: UNK
     Dates: start: 201304
  3. TAXOL [Suspect]
     Indication: HEAD AND NECK CANCER METASTATIC
     Dosage: UNK
     Dates: start: 201304

REACTIONS (7)
  - Supraventricular tachycardia [Recovering/Resolving]
  - Haemoglobin decreased [Recovering/Resolving]
  - Diarrhoea [Recovering/Resolving]
  - Nausea [Recovering/Resolving]
  - Facial pain [Recovering/Resolving]
  - Dizziness [Recovering/Resolving]
  - Vomiting [Recovering/Resolving]
